FAERS Safety Report 4954954-5 (Version None)
Quarter: 2006Q1

REPORT INFORMATION
  Report Type: 
  Country: None (occurrence: None)
  Receive Date: 20060322
  Receipt Date: 20060313
  Transmission Date: 20060701
  Serious: Yes (Other)
  Sender: FDA-Public Use
  Company Number: 2006035653

PATIENT

DRUGS (1)
  1. LISTERINE ANTISEPTIC  MOUTHWASH (MENTHOL, METHYL SALICYLATE, EUCALYPTO [Suspect]
     Dosage: A WHOLE BOTTLE DAILY, ORAL
     Route: 048

REACTIONS (2)
  - INCORRECT ROUTE OF DRUG ADMINISTRATION [None]
  - INTENTIONAL DRUG MISUSE [None]
